FAERS Safety Report 9598443 (Version 1)
Quarter: 2013Q4

REPORT INFORMATION
  Report Type: Spontaneous
  Country: US (occurrence: US)
  Receive Date: 20131004
  Receipt Date: 20131004
  Transmission Date: 20140711
  Serious: No
  Sender: FDA-Public Use
  Company Number: US-AMGEN-USASP2013023760

PATIENT
  Age: 31 Year
  Sex: Female
  Weight: 137.42 kg

DRUGS (8)
  1. ENBREL [Suspect]
     Indication: PRODUCT USED FOR UNKNOWN INDICATION
     Dosage: 50 MG, QWK
     Route: 058
  2. CELEBREX [Concomitant]
     Dosage: 400 MG, UNK
  3. ALLEGRA [Concomitant]
     Dosage: 60 MG, UNK
  4. ARAVA [Concomitant]
     Dosage: 20 MG, UNK
  5. TRAMADOL HCL [Concomitant]
     Dosage: 50 MG, UNK
  6. LO LOESTRIN FE [Concomitant]
     Dosage: UNK
  7. MULTIVITAMINS, PLAIN [Concomitant]
     Dosage: UNK
  8. IRON [Concomitant]
     Dosage: UNK

REACTIONS (2)
  - Arthropod bite [Unknown]
  - Impaired healing [Unknown]
